FAERS Safety Report 18574445 (Version 1)
Quarter: 2020Q4

REPORT INFORMATION
  Report Type: Spontaneous
  Country: US (occurrence: US)
  Receive Date: 20201203
  Receipt Date: 20201203
  Transmission Date: 20210114
  Serious: No
  Sender: FDA-Public Use
  Company Number: US-QILU TIANHE PHARMACEUTICAL CO. LTD-QLT-000014-2020

PATIENT
  Sex: Male

DRUGS (2)
  1. PIPERACILLIN AND TAZOBACTAM [Suspect]
     Active Substance: PIPERACILLIN SODIUM\TAZOBACTAM SODIUM
     Dosage: UNK, QID
     Route: 042
     Dates: start: 202009
  2. PIPERACILLIN AND TAZOBACTAM [Suspect]
     Active Substance: PIPERACILLIN SODIUM\TAZOBACTAM SODIUM
     Indication: PRODUCT USED FOR UNKNOWN INDICATION
     Dosage: UNK, QID
     Route: 042
     Dates: start: 202009

REACTIONS (3)
  - Rash [Unknown]
  - Pyrexia [Unknown]
  - Hypersensitivity [None]

NARRATIVE: CASE EVENT DATE: 202009
